FAERS Safety Report 5480151-3 (Version None)
Quarter: 2007Q4

REPORT INFORMATION
  Report Type: 
  Country: None (occurrence: None)
  Receive Date: 20071009
  Receipt Date: 20070928
  Transmission Date: 20080405
  Serious: Yes (Death, Hospitalization)
  Sender: FDA-Public Use
  Company Number: US-JNJFOC-20070901958

PATIENT
  Sex: Female

DRUGS (9)
  1. INVEGA [Suspect]
     Indication: DEMENTIA
     Route: 048
  2. SEROQUEL [Concomitant]
     Indication: PSYCHOTIC DISORDER
  3. ARICEPT [Concomitant]
     Indication: DEMENTIA
  4. DEPAKOTE [Concomitant]
     Indication: AGITATION
  5. ATIVAN [Concomitant]
     Indication: AGITATION
  6. FOSAMAX [Concomitant]
  7. LIPITOR [Concomitant]
  8. CALCIUM [Concomitant]
  9. MULTI-VITAMIN [Concomitant]

REACTIONS (7)
  - ABASIA [None]
  - ACTIVITIES OF DAILY LIVING IMPAIRED [None]
  - COMMUNICATION DISORDER [None]
  - CONFUSIONAL STATE [None]
  - FAILURE TO THRIVE [None]
  - LETHARGY [None]
  - SEDATION [None]
